FAERS Safety Report 6346175-9 (Version None)
Quarter: 2009Q3

REPORT INFORMATION
  Report Type: 
  Country: None (occurrence: None)
  Receive Date: 20090821
  Receipt Date: 20090528
  Transmission Date: 20100115
  Serious: No
  Sender: FDA-Public Use
  Company Number: 8047081

PATIENT
  Sex: Female

DRUGS (2)
  1. CIMZIA [Suspect]
  2. PREDNISONE TAB [Concomitant]

REACTIONS (1)
  - OFF LABEL USE [None]
